FAERS Safety Report 8122843-3 (Version None)
Quarter: 2012Q1

REPORT INFORMATION
  Report Type: 
  Country: None (occurrence: None)
  Receive Date: 20120208
  Receipt Date: 20120130
  Transmission Date: 20120608
  Serious: Yes (Other)
  Sender: FDA-Public Use
  Company Number: CA-BAYER-2011-123759

PATIENT
  Age: 45 Year
  Sex: Female

DRUGS (1)
  1. MIRENA [Suspect]
     Dosage: UNK UNK, CONT
     Dates: start: 20100901, end: 20111222

REACTIONS (9)
  - ABDOMINAL PAIN [None]
  - ABDOMINAL PAIN UPPER [None]
  - POST PROCEDURAL HAEMORRHAGE [None]
  - SLEEP DISORDER [None]
  - DYSPEPSIA [None]
  - ADNEXA UTERI PAIN [None]
  - ARTHRITIS [None]
  - UTERINE LEIOMYOMA [None]
  - MENORRHAGIA [None]
